FAERS Safety Report 7132677-4 (Version None)
Quarter: 2010Q4

REPORT INFORMATION
  Report Type: 
  Country: None (occurrence: None)
  Receive Date: 20101202
  Receipt Date: 20101122
  Transmission Date: 20110411
  Serious: Yes (Other)
  Sender: FDA-Public Use
  Company Number: US-JNJFOC-20101108805

PATIENT
  Sex: Female
  Weight: 54.43 kg

DRUGS (3)
  1. REMICADE [Suspect]
     Indication: CROHN'S DISEASE
     Route: 042
  2. YAZ [Concomitant]
     Indication: CONTRACEPTION
     Route: 048
  3. ADVAIR [Concomitant]
     Indication: ASTHMA
     Dosage: ONCE DAILY SEASONALLY
     Route: 048

REACTIONS (5)
  - DIARRHOEA [None]
  - FISTULA [None]
  - FLATULENCE [None]
  - PAIN [None]
  - WEIGHT DECREASED [None]
